FAERS Safety Report 23202822 (Version 1)
Quarter: 2023Q4

REPORT INFORMATION
  Report Type: Spontaneous
  Country: US (occurrence: None)
  Receive Date: 20231119
  Receipt Date: 20231119
  Transmission Date: 20240110
  Serious: Yes (Disabling)
  Sender: FDA-Public Use
  Company Number: None

PATIENT
  Age: 75 Year
  Sex: Female
  Weight: 140.4 kg

DRUGS (2)
  1. PROLIA [Suspect]
     Active Substance: DENOSUMAB
     Indication: Osteoporosis
     Dosage: OTHER ROUTE : SHOT;?
     Route: 050
     Dates: start: 20220911
  2. women^s Vitamins [Concomitant]

REACTIONS (6)
  - Tooth disorder [None]
  - Swollen tongue [None]
  - Candida infection [None]
  - Thyroid disorder [None]
  - Infection [None]
  - Tooth infection [None]
